FAERS Safety Report 7621969-8 (Version None)
Quarter: 2011Q3

REPORT INFORMATION
  Report Type: 
  Country: None (occurrence: None)
  Receive Date: 20110720
  Receipt Date: 20110331
  Transmission Date: 20111222
  Serious: Yes (Hospitalization)
  Sender: FDA-Public Use
  Company Number: IT-BAYER-2011-028193

PATIENT
  Age: 86 Year
  Sex: Male

DRUGS (2)
  1. ATENOLOL [Concomitant]
     Dosage: DAILY DOSE 100 MG
     Route: 048
  2. ASPIRIN [Suspect]
     Indication: PROPHYLAXIS
     Dosage: 100 MG, QD
     Route: 048
     Dates: start: 20010101, end: 20110315

REACTIONS (2)
  - GASTRIC ULCER [None]
  - ANAEMIA [None]
